FAERS Safety Report 25310804 (Version 2)
Quarter: 2025Q4

REPORT INFORMATION
  Report Type: Report from Study
  Country: CA (occurrence: CA)
  Receive Date: 20250514
  Receipt Date: 20251112
  Transmission Date: 20260117
  Serious: Yes (Disabling, Other)
  Sender: CELLTRION
  Company Number: CA-CELLTRION INC.-2024CA005738

PATIENT

DRUGS (5)
  1. ADALIMUMAB-AATY [Suspect]
     Active Substance: ADALIMUMAB-AATY
     Indication: Colitis ulcerative
     Dosage: 40 MG, 1/WEEK
     Route: 058
     Dates: start: 20240301
  2. ADALIMUMAB-AATY [Suspect]
     Active Substance: ADALIMUMAB-AATY
     Dosage: 40 MG, 1/WEEK
     Route: 058
     Dates: start: 20240510
  3. ADALIMUMAB-AATY [Suspect]
     Active Substance: ADALIMUMAB-AATY
     Dosage: 40 MG, EVERY 14 DAYS
     Route: 058
     Dates: start: 20240301, end: 202408
  4. PANTOPRAZOLE [Concomitant]
     Active Substance: PANTOPRAZOLE
     Indication: Product used for unknown indication
     Dosage: 40 MG DAILY
     Route: 065
  5. MESALAMINE [Concomitant]
     Active Substance: MESALAMINE
     Dosage: UNK

REACTIONS (7)
  - Syncope [Not Recovered/Not Resolved]
  - Malaise [Not Recovered/Not Resolved]
  - Dizziness [Not Recovered/Not Resolved]
  - Injection site swelling [Not Recovered/Not Resolved]
  - Injection site pruritus [Not Recovered/Not Resolved]
  - Therapy non-responder [Not Recovered/Not Resolved]
  - Therapy cessation [Not Recovered/Not Resolved]

NARRATIVE: CASE EVENT DATE: 20240801
